FAERS Safety Report 14985226 (Version 2)
Quarter: 2018Q3

REPORT INFORMATION
  Report Type: Spontaneous
  Country: US (occurrence: US)
  Receive Date: 20180607
  Receipt Date: 20180810
  Transmission Date: 20181010
  Serious: Yes (Death, Other)
  Sender: FDA-Public Use
  Company Number: US-BAYER-2018-106200

PATIENT
  Age: 68 Year
  Sex: Female

DRUGS (1)
  1. GADAVIST [Suspect]
     Active Substance: GADOBUTROL
     Indication: BRAIN NEOPLASM
     Dosage: 4.5 DF, ONCE
     Route: 042
     Dates: start: 20180531, end: 20180531

REACTIONS (13)
  - Pulmonary oedema [Fatal]
  - Productive cough [None]
  - Lung disorder [Fatal]
  - Acidosis [Fatal]
  - Brain neoplasm [Fatal]
  - Sepsis [Fatal]
  - Ovarian cancer [Fatal]
  - Dehydration [Fatal]
  - Bradycardia [None]
  - Multiple organ dysfunction syndrome [Fatal]
  - Malignant neoplasm of unknown primary site [Fatal]
  - Failure to thrive [Fatal]
  - Unevaluable event [Fatal]

NARRATIVE: CASE EVENT DATE: 20180531
